FAERS Safety Report 8578775-X (Version None)
Quarter: 2012Q3

REPORT INFORMATION
  Report Type: 
  Country: None (occurrence: None)
  Receive Date: 20120808
  Receipt Date: 20120731
  Transmission Date: 20120928
  Serious: Yes (Hospitalization, Other)
  Sender: FDA-Public Use
  Company Number: DE-B.I. PHARMACEUTICALS,INC./RIDGEFIELD-2012-DE-01751DE

PATIENT
  Sex: Male
  Weight: 120 kg

DRUGS (9)
  1. PRADAXA [Suspect]
     Indication: ATRIAL FIBRILLATION
     Dosage: 220 MG
     Dates: start: 20111010
  2. LEVOTHYROXINE SODIUM [Concomitant]
     Indication: THYROIDITIS
     Dosage: 75 MG
     Dates: start: 20100510
  3. JANUVIA [Concomitant]
     Indication: TYPE 2 DIABETES MELLITUS
     Dosage: 100 MG
     Dates: start: 20100925
  4. METOPROLOL SUCCINATE [Concomitant]
     Indication: HYPERTENSION
     Dates: start: 20080301
  5. REPAGLINIDE [Concomitant]
     Indication: TYPE 2 DIABETES MELLITUS
     Dosage: 3 MG
     Dates: start: 20090701
  6. AMIODARONE HCL [Concomitant]
     Indication: ATRIAL FIBRILLATION
     Dosage: 200 MG
     Dates: start: 20110507
  7. TAMSULOSIN HCL [Concomitant]
     Indication: BENIGN PROSTATIC HYPERPLASIA
     Dosage: 0.4 MG
     Dates: start: 20111102
  8. RAMIPRIL [Concomitant]
     Indication: HYPERTENSION
     Dosage: 2.5 MG
     Dates: start: 20080310
  9. TORSEMIDE [Concomitant]
     Indication: HYPERTENSION
     Dosage: 20 MG
     Dates: start: 20111010

REACTIONS (1)
  - APLASTIC ANAEMIA [None]
